FAERS Safety Report 5591422-4 (Version None)
Quarter: 2008Q1

REPORT INFORMATION
  Report Type: 
  Country: None (occurrence: None)
  Receive Date: 20080111
  Receipt Date: 20080111
  Transmission Date: 20080703
  Serious: Yes (Hospitalization)
  Sender: FDA-Public Use
  Company Number: None

PATIENT
  Age: 39 Year
  Sex: Male
  Weight: 99.7913 kg

DRUGS (5)
  1. CISPLATIN [Suspect]
     Indication: NEOPLASM MALIGNANT
     Dosage: 72 MG X 3 DAYS
     Dates: start: 20071126, end: 20071128
  2. CISPLATIN [Suspect]
     Indication: NEOPLASM MALIGNANT
     Dosage: 72 MG X 3 DAYS
     Dates: start: 20071226, end: 20071228
  3. TARCEVA [Concomitant]
  4. CISPLATIN [Concomitant]
  5. BEVACIZUMAB [Concomitant]

REACTIONS (4)
  - BLOOD PRESSURE ORTHOSTATIC [None]
  - DEHYDRATION [None]
  - NAUSEA [None]
  - VOMITING [None]
